FAERS Safety Report 13706285 (Version 1)
Quarter: 2017Q2

REPORT INFORMATION
  Report Type: Spontaneous
  Country: US (occurrence: US)
  Receive Date: 20170630
  Receipt Date: 20170630
  Transmission Date: 20170830
  Serious: No
  Sender: FDA-Public Use
  Company Number: US-SA-2016SA228012

PATIENT
  Age: 39 Year
  Sex: Female

DRUGS (1)
  1. PRIFTIN [Suspect]
     Active Substance: RIFAPENTINE
     Route: 065

REACTIONS (1)
  - Transcription medication error [Unknown]
